FAERS Safety Report 7812250-2 (Version None)
Quarter: 2011Q4

REPORT INFORMATION
  Report Type: 
  Country: None (occurrence: None)
  Receive Date: 20111011
  Receipt Date: 20110929
  Transmission Date: 20120403
  Serious: Yes (Other)
  Sender: FDA-Public Use
  Company Number: AUR-APL-2011-05281

PATIENT
  Age: 81 Year
  Sex: Female
  Weight: 58.9676 kg

DRUGS (2)
  1. ALENDRONATE SODIUM [Suspect]
     Indication: BONE DENSITY DECREASED
     Dosage: 10 MG (70 MG,1 IN 1 WK),ORAL
     Route: 048
     Dates: start: 20100101
  2. FOSAMAX [Concomitant]

REACTIONS (2)
  - BONE PAIN [None]
  - TABLET PHYSICAL ISSUE [None]
